FAERS Safety Report 10349311 (Version 1)
Quarter: 2014Q3

REPORT INFORMATION
  Report Type: Spontaneous
  Country: US (occurrence: US)
  Receive Date: 20140730
  Receipt Date: 20140730
  Transmission Date: 20150326
  Serious: No
  Sender: FDA-Public Use
  Company Number: US-BIOGENIDEC-2014BI072392

PATIENT
  Age: 42 Year
  Sex: Female

DRUGS (1)
  1. TECFIDERA [Suspect]
     Active Substance: DIMETHYL FUMARATE
     Indication: MULTIPLE SCLEROSIS
     Route: 048
     Dates: start: 201405

REACTIONS (8)
  - Erythema [Recovered/Resolved]
  - Abdominal distension [Recovered/Resolved]
  - Chest discomfort [Recovered/Resolved]
  - Sensory disturbance [Recovered/Resolved]
  - Anxiety [Not Recovered/Not Resolved]
  - Burning sensation [Recovered/Resolved]
  - Discomfort [Recovered/Resolved]
  - Flushing [Recovered/Resolved]

NARRATIVE: CASE EVENT DATE: 2014
